FAERS Safety Report 18726182 (Version 1)
Quarter: 2021Q1

REPORT INFORMATION
  Report Type: Spontaneous
  Country: US (occurrence: US)
  Receive Date: 20210111
  Receipt Date: 20210111
  Transmission Date: 20210419
  Serious: Yes (Disabling, Other)
  Sender: FDA-Public Use
  Company Number: US-009507513-2101USA003741

PATIENT
  Sex: Female

DRUGS (6)
  1. IBANDRONATE SODIUM. [Suspect]
     Active Substance: IBANDRONATE SODIUM
     Indication: OSTEOPOROSIS
     Dosage: PRESCRIBED AND IN A FORESEEABLE MANNER
     Route: 048
     Dates: end: 2012
  2. FOSAMAX [Suspect]
     Active Substance: ALENDRONATE SODIUM
     Indication: OSTEOPENIA
     Dosage: UNK
     Dates: start: 2006, end: 2012
  3. FOSAMAX [Suspect]
     Active Substance: ALENDRONATE SODIUM
     Dosage: UNK
     Dates: start: 2006, end: 2012
  4. IBANDRONATE SODIUM. [Suspect]
     Active Substance: IBANDRONATE SODIUM
     Indication: OSTEOPENIA
     Dosage: UNK
     Dates: end: 2012
  5. BONIVA [Suspect]
     Active Substance: IBANDRONATE SODIUM
     Indication: OSTEOPOROSIS
     Dosage: ^PRESCRIBED AND IN A FORESEEABLE MANNER^
     Route: 048
     Dates: start: 2006, end: 2012
  6. FOSAMAX [Suspect]
     Active Substance: ALENDRONATE SODIUM
     Indication: OSTEOPOROSIS
     Dosage: ^PRESCRIBED AND IN A FORESEEABLE MANNER^
     Route: 048
     Dates: start: 2006, end: 2012

REACTIONS (7)
  - Femur fracture [Unknown]
  - Emotional distress [Unknown]
  - Pain [Unknown]
  - Femur fracture [Not Recovered/Not Resolved]
  - Injury [Unknown]
  - Incorrect product administration duration [Unknown]
  - Bone disorder [Not Recovered/Not Resolved]

NARRATIVE: CASE EVENT DATE: 201301
